FAERS Safety Report 9796368 (Version 1)
Quarter: 2014Q1

REPORT INFORMATION
  Report Type: Spontaneous
  Country: US (occurrence: US)
  Receive Date: 20140103
  Receipt Date: 20140103
  Transmission Date: 20141002
  Serious: No
  Sender: FDA-Public Use
  Company Number: US-BAYER-2014-000564

PATIENT
  Age: 29 Year
  Sex: Male
  Weight: 77 kg

DRUGS (1)
  1. ALEVE TABLET [Suspect]
     Dosage: 4 DF, UNK
     Route: 048
     Dates: start: 20131230

REACTIONS (1)
  - Extra dose administered [None]
